FAERS Safety Report 5571979-X (Version None)
Quarter: 2007Q4

REPORT INFORMATION
  Report Type: 
  Country: None (occurrence: None)
  Receive Date: 20071221
  Receipt Date: 20071211
  Transmission Date: 20080405
  Serious: Yes (Hospitalization)
  Sender: FDA-Public Use
  Company Number: ES-BOEHRINGER INGELHEIM PHARMACEUTICALS, INC.-2006-DE-03248GD

PATIENT

DRUGS (13)
  1. ASPIRIN [Suspect]
     Indication: PROPHYLAXIS
  2. ASPIRIN [Suspect]
     Indication: PAIN
  3. ASPIRIN [Suspect]
  4. ASPIRIN [Suspect]
  5. ASPIRIN [Suspect]
  6. ASPIRIN [Suspect]
     Dosage: } 1 G
  7. IBUPROFEN [Suspect]
  8. DICLOFENAC SODIUM [Suspect]
  9. NAPROXEN [Suspect]
  10. PIROXICAM THOMAE [Suspect]
  11. MELOXICAM [Suspect]
  12. NSAID [Suspect]
  13. COXIB [Suspect]

REACTIONS (3)
  - DRUG INTERACTION [None]
  - GASTROINTESTINAL ULCER HAEMORRHAGE [None]
  - UPPER GASTROINTESTINAL HAEMORRHAGE [None]
